FAERS Safety Report 24924228 (Version 1)
Quarter: 2025Q1

REPORT INFORMATION
  Report Type: Spontaneous
  Country: HR (occurrence: HR)
  Receive Date: 20250204
  Receipt Date: 20250204
  Transmission Date: 20250408
  Serious: Yes (Other)
  Sender: BAYER HEALTHCARE PHARMACEUTICALS INC.
  Company Number: HR-BAYER-2025A012789

PATIENT
  Age: 59 Year
  Sex: Male

DRUGS (9)
  1. KERENDIA [Suspect]
     Active Substance: FINERENONE
     Indication: Chronic kidney disease
  2. KERENDIA [Suspect]
     Active Substance: FINERENONE
     Indication: Proteinuria
  3. KERENDIA [Suspect]
     Active Substance: FINERENONE
     Indication: Diabetes mellitus
  4. AMLODIPINE BESYLATE\INDAPAMIDE\PERINDOPRIL ARGININE [Concomitant]
     Active Substance: AMLODIPINE BESYLATE\INDAPAMIDE\PERINDOPRIL ARGININE
  5. NEBIVOLOL [Concomitant]
     Active Substance: NEBIVOLOL
  6. MOXONIDINE [Concomitant]
     Active Substance: MOXONIDINE
  7. INSULIN GLARGINE [Concomitant]
     Active Substance: INSULIN GLARGINE
     Route: 058
  8. GLIQUIDONE [Concomitant]
     Active Substance: GLIQUIDONE
  9. DAPAGLIFLOZIN [Concomitant]
     Active Substance: DAPAGLIFLOZIN

REACTIONS (2)
  - Urine albumin/creatinine ratio decreased [None]
  - Blood potassium increased [None]
